FAERS Safety Report 15075041 (Version 1)
Quarter: 2018Q2

REPORT INFORMATION
  Report Type: Report from Study
  Country: US (occurrence: US)
  Receive Date: 20180627
  Receipt Date: 20180627
  Transmission Date: 20180711
  Serious: Yes (Other)
  Sender: FDA-Public Use
  Company Number: US-SAOL THERAPEUTICS-2017SAO01284

PATIENT
  Age: 57 Year
  Sex: Female

DRUGS (6)
  1. BACLOFEN. [Suspect]
     Active Substance: BACLOFEN
     Dosage: 179.60 ?G, \DAY-MAX
     Route: 037
     Dates: start: 20170124
  2. BUPIVACAINE. [Suspect]
     Active Substance: BUPIVACAINE
     Dosage: 2.395 MG, \DAY--MAX
     Dates: start: 20170124
  3. BACLOFEN. [Suspect]
     Active Substance: BACLOFEN
     Dosage: UNK
     Route: 037
  4. BUPIVACAINE. [Suspect]
     Active Substance: BUPIVACAINE
     Dosage: 1.998 MG, \DAY
     Route: 037
     Dates: start: 20170124
  5. BACLOFEN. [Suspect]
     Active Substance: BACLOFEN
     Dosage: 149.88 ?G, \DAY
     Route: 037
     Dates: start: 20170124
  6. BUPIVACAINE. [Suspect]
     Active Substance: BUPIVACAINE
     Dosage: UNK
     Route: 037

REACTIONS (2)
  - Muscle spasms [Unknown]
  - Pain [Recovered/Resolved]

NARRATIVE: CASE EVENT DATE: 20170403
